FAERS Safety Report 10087017 (Version 4)
Quarter: 2015Q2

REPORT INFORMATION
  Report Type: Spontaneous
  Country: US (occurrence: US)
  Receive Date: 20140418
  Receipt Date: 20150626
  Transmission Date: 20150821
  Serious: Yes (Hospitalization, Other)
  Sender: FDA-Public Use
  Company Number: US-UCBSA-113847

PATIENT
  Age: 56 Year
  Sex: Female
  Weight: 45.3 kg

DRUGS (3)
  1. AMLODIPINE [Concomitant]
     Active Substance: AMLODIPINE BESYLATE
     Indication: HYPERTENSION
     Dosage: 500 MG, 2X/DAY (BID)
     Route: 048
     Dates: start: 20120420, end: 20140415
  2. KEPPRA XR [Suspect]
     Active Substance: LEVETIRACETAM
     Indication: SEIZURE
     Dosage: EXTENDED RELEASE TABLETS; TAKING FOR ABOUT 5 YEARS
     Route: 048
     Dates: start: 20120420, end: 20140415
  3. AMLODIPINE [Concomitant]
     Active Substance: AMLODIPINE BESYLATE
     Dosage: 750 MG, 2X/2 DAYS
     Dates: start: 20140415

REACTIONS (7)
  - Pancreatitis acute [Unknown]
  - Crohn^s disease [Unknown]
  - Seizure [Recovered/Resolved]
  - Chest pain [Recovered/Resolved]
  - Abdominal pain [Recovered/Resolved]
  - Inappropriate schedule of drug administration [Unknown]
  - Psychotic disorder [Unknown]

NARRATIVE: CASE EVENT DATE: 20120420
